FAERS Safety Report 5746195-9 (Version None)
Quarter: 2008Q2

REPORT INFORMATION
  Report Type: 
  Country: None (occurrence: None)
  Receive Date: 20080522
  Receipt Date: 20080404
  Transmission Date: 20081010
  Serious: Yes (Life-Threatening)
  Sender: FDA-Public Use
  Company Number: CH-ROCHE-557202

PATIENT
  Age: 65 Year
  Sex: Female

DRUGS (18)
  1. CELLCEPT [Suspect]
     Dosage: LONG TERM THERAPY
     Route: 048
  2. PROGRAF [Suspect]
     Indication: LUNG TRANSPLANT
     Dosage: DOSE: 0.0377 MG/KG
     Route: 048
     Dates: end: 20080307
  3. NOXAFIL [Suspect]
     Indication: DRUG USE FOR UNKNOWN INDICATION
     Dosage: LONG TERM THERAPY
     Route: 048
  4. FLAGYL [Suspect]
     Indication: DRUG USE FOR UNKNOWN INDICATION
     Route: 048
     Dates: end: 20080306
  5. CANCIDAS [Concomitant]
     Route: 042
     Dates: start: 20080228
  6. POTASSIUM CHLORIDE [Concomitant]
     Dosage: IN 1000 ML NACL 0.9% INFUSION 1X/DAY IV
     Route: 041
  7. LIQUAEMIN INJ [Concomitant]
     Dosage: FORM: VIAL
     Route: 058
  8. RECORMON [Concomitant]
     Route: 058
  9. ALBUMIN (HUMAN) [Concomitant]
     Dosage: FORM REPORTED: INFUSION AMPOULES, BAGS
  10. FOLVITE [Concomitant]
     Route: 048
  11. NEXIUM [Concomitant]
     Route: 048
  12. NEPHROTRANS [Concomitant]
     Route: 048
  13. WELLVONE [Concomitant]
     Dosage: FORM: LIQUIDS, SUSPENSIONS
     Route: 048
  14. PREDNISONE TAB [Concomitant]
     Route: 048
     Dates: start: 20080303
  15. TOREM [Concomitant]
     Route: 048
  16. ACTRAPID [Concomitant]
     Dosage: AS REQUIRED ACCORDING TO BLOOD GLUCOSE LEVEL
     Route: 058
  17. OXAZEPAM [Concomitant]
     Dosage: AS REQUIRED
     Route: 048
  18. DAFALGAN [Concomitant]
     Dosage: AS REQUIRED.
     Route: 048

REACTIONS (1)
  - EPILEPSY [None]
